FAERS Safety Report 10031945 (Version 2)
Quarter: 2014Q2

REPORT INFORMATION
  Report Type: Spontaneous
  Country: US (occurrence: US)
  Receive Date: 20140324
  Receipt Date: 20140526
  Transmission Date: 20141212
  Serious: Yes (Other)
  Sender: FDA-Public Use
  Company Number: US-UCBSA-114739

PATIENT
  Sex: Female
  Weight: 49.9 kg

DRUGS (8)
  1. KEPPRA [Suspect]
     Indication: TEMPORAL LOBE EPILEPSY
     Route: 048
     Dates: end: 201311
  2. KEPPRA [Suspect]
     Indication: TEMPORAL LOBE EPILEPSY
     Route: 048
     Dates: start: 201311, end: 201311
  3. KEPPRA [Suspect]
     Indication: TEMPORAL LOBE EPILEPSY
     Route: 048
     Dates: start: 201311
  4. CLONAZEPAM [Concomitant]
     Indication: RESTLESS LEGS SYNDROME
     Dosage: TAKES 1/4 OF 0.5 MG TABLET EVERY 4 DAYS
     Route: 048
  5. VALTREX [Concomitant]
     Indication: GENITAL HERPES
     Dosage: 250 MG, RARE, NO OUTBREAK FOR 20 YEARS
     Route: 048
  6. VITAMIN D [Concomitant]
     Indication: VITAMIN SUPPLEMENTATION
     Route: 048
  7. LYSINE [Concomitant]
     Indication: SUPPLEMENTATION THERAPY
     Route: 048
  8. CALCIUM WITH VITAMIN D AND MAGNESIUM [Concomitant]
     Route: 048

REACTIONS (10)
  - Road traffic accident [Recovered/Resolved]
  - Convulsion [Unknown]
  - Hallucination, visual [Recovered/Resolved]
  - Nightmare [Recovered/Resolved]
  - Disorientation [Not Recovered/Not Resolved]
  - Sinus headache [Not Recovered/Not Resolved]
  - Depression [Not Recovered/Not Resolved]
  - Disturbance in attention [Unknown]
  - Loss of consciousness [Unknown]
  - Inappropriate schedule of drug administration [Recovered/Resolved]
